FAERS Safety Report 5108518-3 (Version None)
Quarter: 2006Q3

REPORT INFORMATION
  Report Type: 
  Country: None (occurrence: None)
  Receive Date: 20060919
  Receipt Date: 20060911
  Transmission Date: 20061208
  Serious: Yes (Disabling)
  Sender: FDA-Public Use
  Company Number: GB-ABBOTT-06P-167-0343785-00

PATIENT
  Age: 68 Year
  Sex: Female

DRUGS (3)
  1. HUMIRA [Suspect]
     Indication: RHEUMATOID ARTHRITIS
     Route: 058
     Dates: start: 20030601, end: 20060612
  2. CALCIUM CARBONATE [Concomitant]
     Indication: PROPHYLAXIS
     Route: 048
     Dates: start: 19990101
  3. RISEDRONATE SODIUM [Concomitant]
     Indication: PROPHYLAXIS
     Route: 048
     Dates: start: 19990101

REACTIONS (2)
  - VAGINAL PAIN [None]
  - VULVOVAGINAL DISCOMFORT [None]
